FAERS Safety Report 24280281 (Version 1)
Quarter: 2024Q3

REPORT INFORMATION
  Report Type: Spontaneous
  Country: FR (occurrence: FR)
  Receive Date: 20240904
  Receipt Date: 20240904
  Transmission Date: 20241017
  Serious: Yes (Hospitalization, Other)
  Sender: CHEPLAPHARM
  Company Number: None

PATIENT
  Age: 53 Year
  Sex: Female
  Weight: 70 kg

DRUGS (6)
  1. OLANZAPINE [Suspect]
     Active Substance: OLANZAPINE
     Indication: Bipolar II disorder
     Dosage: DAILY DOSE: 10 MILLIGRAM
     Route: 048
     Dates: end: 20240808
  2. QUETIAPINE [Suspect]
     Active Substance: QUETIAPINE
     Indication: Bipolar II disorder
     Dosage: DAILY DOSE: 300 MILLIGRAM
     Route: 048
     Dates: end: 20240808
  3. CYAMEMAZINE [Suspect]
     Active Substance: CYAMEMAZINE
     Indication: Bipolar II disorder
     Route: 048
     Dates: end: 20240808
  4. ZOPICLONE [Suspect]
     Active Substance: ZOPICLONE
     Dosage: 5CP AT BEDTIME
  5. ESOMEPRAZOLE [Suspect]
     Active Substance: ESOMEPRAZOLE
     Dosage: 1-0-0?DAILY DOSE: 40 MILLIGRAM
  6. LAMICTAL [Suspect]
     Active Substance: LAMOTRIGINE
     Dosage: 1-0-1?DAILY DOSE: 400 DOSAGE FORM

REACTIONS (7)
  - Coma [Recovered/Resolved]
  - Generalised tonic-clonic seizure [Recovering/Resolving]
  - Hypotension [Recovering/Resolving]
  - Catatonia [Not Recovered/Not Resolved]
  - Cerebral venous thrombosis [Unknown]
  - Paraparesis [Unknown]
  - Dysarthria [Unknown]

NARRATIVE: CASE EVENT DATE: 20240729
